FAERS Safety Report 5994271-8 (Version None)
Quarter: 2008Q4

REPORT INFORMATION
  Report Type: 
  Country: None (occurrence: None)
  Receive Date: 20081212
  Receipt Date: 20080909
  Transmission Date: 20090506
  Serious: No
  Sender: FDA-Public Use
  Company Number: US-ABBOTT-08P-163-0475403-00

PATIENT
  Sex: Female
  Weight: 55.842 kg

DRUGS (5)
  1. HUMIRA [Suspect]
     Indication: RHEUMATOID ARTHRITIS
     Route: 050
     Dates: start: 20080601
  2. HUMIRA [Suspect]
     Dosage: PRE-FILLED SYRINGE
  3. SERTRALINE [Concomitant]
     Indication: DISTURBANCE IN ATTENTION
     Route: 048
     Dates: start: 20030101
  4. METHOTREXATE [Concomitant]
     Indication: RHEUMATOID ARTHRITIS
     Dosage: SIX PILLS EVERY WEEK
     Route: 048
     Dates: start: 20010101
  5. PREDNISONE TAB [Concomitant]
     Indication: RHEUMATOID ARTHRITIS
     Route: 048
     Dates: start: 20010101

REACTIONS (1)
  - ACCIDENTAL EXPOSURE [None]
